FAERS Safety Report 25970620 (Version 1)
Quarter: 2025Q4

REPORT INFORMATION
  Report Type: Spontaneous
  Country: US (occurrence: US)
  Receive Date: 20251028
  Receipt Date: 20251028
  Transmission Date: 20260119
  Serious: No
  Sender: NOVO NORDISK
  Company Number: US-NOVOPROD-1390506

PATIENT
  Age: 6 Year
  Sex: Male

DRUGS (1)
  1. SOGROYA [Suspect]
     Active Substance: SOMAPACITAN-BECO
     Indication: Growth hormone deficiency
     Dosage: 1.8 MG SQ ONCE WEEKLY
     Route: 058
     Dates: start: 20240304

REACTIONS (1)
  - Alopecia [Not Recovered/Not Resolved]

NARRATIVE: CASE EVENT DATE: 20250101
